FAERS Safety Report 19897025 (Version 1)
Quarter: 2021Q3

REPORT INFORMATION
  Report Type: Spontaneous
  Country: US (occurrence: US)
  Receive Date: 20210929
  Receipt Date: 20210929
  Transmission Date: 20211014
  Serious: Yes (Death)
  Sender: FDA-Public Use
  Company Number: US-AMNEAL PHARMACEUTICALS-2021-AMRX-01010

PATIENT
  Sex: Male

DRUGS (3)
  1. RYTARY [Suspect]
     Active Substance: CARBIDOPA\LEVODOPA
     Indication: PRODUCT USED FOR UNKNOWN INDICATION
     Dosage: 4 CAPSULES, 3X/DAY
     Route: 048
  2. RYTARY [Suspect]
     Active Substance: CARBIDOPA\LEVODOPA
     Dosage: 11 CAPSULES, DAILY (4 CAPSULES AT 7AM, 2 CAPSULES AT 11 AM, 2 CAPSULES AT 3PM AND 3 CAPSULE AT 7 PM)
     Route: 048
     Dates: start: 20200511
  3. RYTARY [Suspect]
     Active Substance: CARBIDOPA\LEVODOPA
     Dosage: 11 CAPSULES, DAILY (4 CAPSULES 2X/DAY AND 3 CAPSULE ONCE A DAY)
     Route: 048

REACTIONS (3)
  - Adverse event [Fatal]
  - Peripheral swelling [Unknown]
  - Cardiac disorder [Unknown]
